FAERS Safety Report 6073483-1 (Version None)
Quarter: 2009Q1

REPORT INFORMATION
  Report Type: 
  Country: None (occurrence: None)
  Receive Date: 20090211
  Receipt Date: 20090203
  Transmission Date: 20090719
  Serious: Yes (Other)
  Sender: FDA-Public Use
  Company Number: MX-BAYER-200911859LA

PATIENT
  Age: 30 Year
  Sex: Male

DRUGS (1)
  1. AVELOX [Suspect]
     Indication: TYPHOID FEVER
     Route: 048

REACTIONS (1)
  - ACUTE MYOCARDIAL INFARCTION [None]
